FAERS Safety Report 13569362 (Version 4)
Quarter: 2017Q4

REPORT INFORMATION
  Report Type: Spontaneous
  Country: US (occurrence: US)
  Receive Date: 20170522
  Receipt Date: 20171121
  Transmission Date: 20180320
  Serious: Yes (Life-Threatening, Hospitalization)
  Sender: FDA-Public Use
  Company Number: US-JNJFOC-20170520072

PATIENT
  Age: 43 Year
  Sex: Male

DRUGS (3)
  1. INVOKANA [Suspect]
     Active Substance: CANAGLIFLOZIN
     Indication: DIABETES MELLITUS
     Route: 048
     Dates: start: 20150622, end: 20150625
  2. LATUDA [Suspect]
     Active Substance: LURASIDONE HYDROCHLORIDE
     Indication: PSYCHOTIC DISORDER
     Route: 048
  3. METFORMIN [Suspect]
     Active Substance: METFORMIN HYDROCHLORIDE
     Indication: DIABETES MELLITUS
     Dosage: VARYING DOSES OF 500 MG AND 1000 MG TWICE A DAY
     Route: 048
     Dates: start: 201506

REACTIONS (10)
  - Acute kidney injury [Recovered/Resolved]
  - Acute respiratory failure [Recovered/Resolved]
  - Haematemesis [Recovered/Resolved]
  - Metabolic encephalopathy [Recovered/Resolved]
  - Seizure [Recovered/Resolved]
  - Blindness [Recovered/Resolved]
  - Diabetic ketoacidosis [Recovered/Resolved]
  - Toxicity to various agents [Unknown]
  - Coma [Unknown]
  - Systemic inflammatory response syndrome [Unknown]

NARRATIVE: CASE EVENT DATE: 20150625
